FAERS Safety Report 9578788 (Version 1)
Quarter: 2013Q4

REPORT INFORMATION
  Report Type: Spontaneous
  Country: US (occurrence: US)
  Receive Date: 20131001
  Receipt Date: 20131001
  Transmission Date: 20140711
  Serious: No
  Sender: FDA-Public Use
  Company Number: US-AMGEN-USASP2013015371

PATIENT
  Age: 12 Year
  Sex: Female
  Weight: 35.4 kg

DRUGS (1)
  1. ENBREL [Suspect]
     Indication: JUVENILE IDIOPATHIC ARTHRITIS
     Dosage: 13.75 MG, 2 TIMES/WK
     Route: 058
     Dates: start: 20120905

REACTIONS (1)
  - Oropharyngeal pain [Unknown]
